FAERS Safety Report 8370421-3 (Version None)
Quarter: 2012Q2

REPORT INFORMATION
  Report Type: 
  Country: None (occurrence: None)
  Receive Date: 20120518
  Receipt Date: 20120514
  Transmission Date: 20120825
  Serious: No
  Sender: FDA-Public Use
  Company Number: US-PFIZER INC-2012117285

PATIENT
  Sex: Female
  Weight: 72.562 kg

DRUGS (2)
  1. CLINDAMYCIN HCL [Suspect]
     Indication: BACTERIAL INFECTION
     Dosage: UNK
     Dates: start: 20120502, end: 20120501
  2. CIPROFLOXACIN [Suspect]
     Indication: BACTERIAL INFECTION
     Dosage: UNK
     Route: 042
     Dates: start: 20120502, end: 20120501

REACTIONS (3)
  - DIARRHOEA [None]
  - LYMPHADENOPATHY [None]
  - OROPHARYNGEAL PAIN [None]
